FAERS Safety Report 4350954-7 (Version None)
Quarter: 2004Q2

REPORT INFORMATION
  Report Type: 
  Country: None (occurrence: None)
  Receive Date: 20040430
  Receipt Date: 20040323
  Transmission Date: 20050107
  Serious: Yes (Hospitalization)
  Sender: FDA-Public Use
  Company Number: PHHO2004HK04217

PATIENT
  Age: 83 Year
  Sex: Female

DRUGS (2)
  1. EXELON [Suspect]
     Indication: VASCULAR DEMENTIA
     Dosage: UNSPECIFIED
     Route: 048
     Dates: start: 20040317, end: 20040323
  2. VITAMIN D [Suspect]

REACTIONS (4)
  - GENERAL PHYSICAL HEALTH DETERIORATION [None]
  - HYPERCALCAEMIA [None]
  - RENAL FAILURE [None]
  - SOMNOLENCE [None]
